FAERS Safety Report 6084138-1 (Version None)
Quarter: 2009Q1

REPORT INFORMATION
  Report Type: 
  Country: None (occurrence: None)
  Receive Date: 20090219
  Receipt Date: 20090213
  Transmission Date: 20090719
  Serious: Yes (Death)
  Sender: FDA-Public Use
  Company Number: JP-AVENTIS-200910424JP

PATIENT
  Age: 66 Year
  Sex: Male

DRUGS (2)
  1. TAXOTERE [Suspect]
     Dosage: DOSE: 60 OR 70
     Route: 041
  2. TAXOTERE [Suspect]
     Dosage: DOSE: 60 OR 70
     Route: 041

REACTIONS (1)
  - SUDDEN DEATH [None]
